FAERS Safety Report 8439502-X (Version None)
Quarter: 2012Q2

REPORT INFORMATION
  Report Type: 
  Country: None (occurrence: None)
  Receive Date: 20120608
  Receipt Date: 20120605
  Transmission Date: 20120825
  Serious: Yes (Other)
  Sender: FDA-Public Use
  Company Number: CL-427-2012

PATIENT
  Age: 52 Year
  Sex: Male

DRUGS (5)
  1. RITONAVIR [Suspect]
     Indication: HIV INFECTION
     Dosage: HIV INFECTION
  2. FLUCONAZOLE [Suspect]
     Dosage: 400MG PER DAY ORAL
     Route: 048
  3. FLUTICASONE PROPIONATE [Suspect]
     Indication: BRONCHITIS CHRONIC
     Dosage: 500MICROGRAMG BD INHALER
     Route: 055
  4. EFAVIRENZ [Suspect]
     Indication: HIV INFECTION
  5. ATAZANAVIR [Suspect]
     Indication: HIV INFECTION

REACTIONS (18)
  - CUSHING'S SYNDROME [None]
  - WHEEZING [None]
  - MUSCLE SPASMS [None]
  - BLOOD GLUCOSE INCREASED [None]
  - HYPOTENSION [None]
  - ODYNOPHAGIA [None]
  - FATIGUE [None]
  - OROPHARYNGEAL CANDIDIASIS [None]
  - OEDEMA PERIPHERAL [None]
  - NASAL CONGESTION [None]
  - DYSPHONIA [None]
  - OEDEMA [None]
  - ADRENAL INSUFFICIENCY [None]
  - DYSPNOEA [None]
  - MUSCULAR WEAKNESS [None]
  - STOMATITIS [None]
  - DRUG INTERACTION [None]
  - MALAISE [None]
